FAERS Safety Report 6965318-7 (Version None)
Quarter: 2010Q3

REPORT INFORMATION
  Report Type: 
  Country: None (occurrence: None)
  Receive Date: 20100903
  Receipt Date: 20100824
  Transmission Date: 20110219
  Serious: Yes (Hospitalization)
  Sender: FDA-Public Use
  Company Number: BR-US-EMD SERONO, INC.-7015213

PATIENT
  Sex: Female

DRUGS (2)
  1. REBIF [Suspect]
  2. ACETAMINOPHEN [Concomitant]
     Indication: PRODUCT USED FOR UNKNOWN INDICATION

REACTIONS (4)
  - FALL [None]
  - MOBILITY DECREASED [None]
  - RIB FRACTURE [None]
  - WRIST FRACTURE [None]
